FAERS Safety Report 18610110 (Version 1)
Quarter: 2020Q4

REPORT INFORMATION
  Report Type: Spontaneous
  Country: CN (occurrence: CN)
  Receive Date: 20201214
  Receipt Date: 20201214
  Transmission Date: 20210114
  Serious: Yes (Other)
  Sender: FDA-Public Use
  Company Number: CN-ROCHE-2732316

PATIENT
  Age: 74 Year
  Sex: Female
  Weight: 69 kg

DRUGS (3)
  1. GLUCOSE [Concomitant]
     Active Substance: DEXTROSE
     Indication: COLON CANCER
  2. OXALIPLATIN. [Suspect]
     Active Substance: OXALIPLATIN
     Indication: COLON CANCER
     Route: 041
     Dates: start: 20201113
  3. XELODA [Suspect]
     Active Substance: CAPECITABINE
     Indication: COLON CANCER
     Route: 048
     Dates: start: 20201113

REACTIONS (3)
  - Nausea [Unknown]
  - Vomiting [Unknown]
  - Gastrointestinal disorder [Unknown]

NARRATIVE: CASE EVENT DATE: 20201113
